FAERS Safety Report 4354860-3 (Version None)
Quarter: 2004Q2

REPORT INFORMATION
  Report Type: 
  Country: None (occurrence: None)
  Receive Date: 20040507
  Receipt Date: 20040318
  Transmission Date: 20050107
  Serious: Yes (Hospitalization)
  Sender: FDA-Public Use
  Company Number: BE-BRISTOL-MYERS SQUIBB COMPANY-12536058

PATIENT
  Age: 85 Year
  Sex: Female

DRUGS (14)
  1. CEFEPIME FOR INJ [Suspect]
     Indication: LUNG INFECTION
     Route: 042
     Dates: start: 20040301, end: 20040315
  2. LOGASTRIC [Concomitant]
  3. MOTILIUM [Concomitant]
  4. ACTRAPID [Concomitant]
  5. ZANTAC [Concomitant]
  6. LITICAN [Concomitant]
  7. AMUKIN [Concomitant]
     Dosage: DOSING RANGING FROM 500 MG - 1 GRAM
     Dates: end: 20040307
  8. MINITRAN [Concomitant]
     Dosage: ^10^
  9. LASIX [Concomitant]
     Dosage: ^40^
  10. LORAZEPAM [Concomitant]
     Dosage: ^2.5^
  11. MOVICOL [Concomitant]
  12. LYSOMUCIL [Concomitant]
     Dosage: ^600^
  13. ACEDICONE [Concomitant]
  14. GIVALEX [Concomitant]

REACTIONS (4)
  - APHASIA [None]
  - EPILEPSY [None]
  - NEUROLOGICAL EXAMINATION ABNORMAL [None]
  - RENAL FAILURE [None]
